FAERS Safety Report 9193475 (Version 2)
Quarter: 2013Q2

REPORT INFORMATION
  Report Type: Report from Study
  Country: US (occurrence: US)
  Receive Date: 20130327
  Receipt Date: 20130501
  Transmission Date: 20140414
  Serious: Yes (Other)
  Sender: FDA-Public Use
  Company Number: US-ROCHE-1207256

PATIENT
  Age: 70 Year
  Sex: Female

DRUGS (4)
  1. HERCEPTIN [Suspect]
     Indication: BREAST CANCER
     Route: 065
  2. CYTOXAN [Suspect]
     Indication: BREAST CANCER
     Route: 065
  3. TAXOL [Suspect]
     Indication: BREAST CANCER
     Route: 065
  4. ARIMIDEX [Suspect]
     Indication: BREAST CANCER
     Route: 065

REACTIONS (1)
  - Myocardial infarction [Unknown]
